FAERS Safety Report 5830245-5 (Version None)
Quarter: 2008Q3

REPORT INFORMATION
  Report Type: 
  Country: None (occurrence: None)
  Receive Date: 20080801
  Receipt Date: 20080725
  Transmission Date: 20090109
  Serious: Yes (Other)
  Sender: FDA-Public Use
  Company Number: B0530675A

PATIENT
  Age: 50 Year
  Sex: Female

DRUGS (5)
  1. MELPHALAN [Suspect]
     Indication: MYELODYSPLASTIC SYNDROME
     Dosage: 80MGM2 CYCLIC
     Route: 042
  2. BUSULFAN [Suspect]
     Indication: MYELODYSPLASTIC SYNDROME
     Dosage: 4MGK CYCLIC
     Route: 042
  3. FLUDARABINE PHOSPHATE [Suspect]
     Indication: MYELODYSPLASTIC SYNDROME
     Dosage: 30MGM2 CYCLIC
     Route: 042
  4. CYCLOSPORINE [Concomitant]
     Route: 065
  5. METHOTREXATE [Concomitant]
     Route: 065

REACTIONS (1)
  - THROMBOTIC MICROANGIOPATHY [None]
